FAERS Safety Report 4578219-9 (Version None)
Quarter: 2005Q1

REPORT INFORMATION
  Report Type: 
  Country: None (occurrence: None)
  Receive Date: 20050209
  Receipt Date: 20050120
  Transmission Date: 20050727
  Serious: Yes (Death, Other)
  Sender: FDA-Public Use
  Company Number: USA050188957

PATIENT
  Age: 35 Year
  Sex: Male

DRUGS (3)
  1. ZYPREXA [Suspect]
     Dosage: 10 MG/1 DAY
  2. HHALDOL DECANOATE (HALOPERIDOL DECANOATE0 [Concomitant]
  3. DEPAKOTE [Concomitant]

REACTIONS (2)
  - ANTIPSYCHOTIC DRUG LEVEL INCREASED [None]
  - ROAD TRAFFIC ACCIDENT [None]
